FAERS Safety Report 8423473 (Version 2)
Quarter: 2012Q4

REPORT INFORMATION
  Report Type: 
  Country: FR (occurrence: FR)
  Receive Date: 20120223
  Receipt Date: 20120910
  Transmission Date: 20130627
  Serious: Yes (Other)
  Sender: FDA-Public Use
  Company Number: PHHY2012FR013796

PATIENT
  Sex: Female

DRUGS (5)
  1. ZOMETA [Suspect]
     Indication: METASTASES TO BONE
     Dosage: 1 DF, QMO
     Dates: start: 201003, end: 201104
  2. ZOMETA [Suspect]
     Dosage: 1 DF, QMO
     Dates: start: 201104
  3. ZOMETA [Suspect]
     Dosage: 1 DF, QMO
     Dates: start: 201109, end: 201111
  4. ZOMETA [Suspect]
     Dosage: 1 DF, QMO
     Dates: start: 201111
  5. FEMARA [Suspect]
     Indication: BREAST CANCER METASTATIC
     Dosage: 1 DF, daily
     Route: 048
     Dates: start: 201003

REACTIONS (3)
  - Osteonecrosis of jaw [Unknown]
  - Impaired healing [Recovered/Resolved]
  - Tooth infection [Unknown]
